FAERS Safety Report 8096095-7 (Version None)
Quarter: 2012Q1

REPORT INFORMATION
  Report Type: 
  Country: None (occurrence: None)
  Receive Date: 20120131
  Receipt Date: 20120126
  Transmission Date: 20120608
  Serious: Yes (Other)
  Sender: FDA-Public Use
  Company Number: US-GLAXOSMITHKLINE-A0886175A

PATIENT
  Age: 41 Year
  Sex: Female
  Weight: 186.4 kg

DRUGS (18)
  1. AVANDIA [Suspect]
     Indication: DIABETES MELLITUS
     Dosage: 4MG TWICE PER DAY
     Route: 048
     Dates: start: 20091104, end: 20100401
  2. GLIPIZIDE [Concomitant]
     Dates: start: 20100401
  3. STUDY MEDICATION [Concomitant]
     Indication: RHEUMATOID ARTHRITIS
     Dosage: 10MG TWICE PER DAY
     Route: 048
     Dates: start: 20100824
  4. LANTUS [Concomitant]
     Dates: start: 20100817
  5. ACETYLSALICYLIC ACID SRT [Concomitant]
     Dosage: 81MG PER DAY
     Dates: start: 20060214
  6. PRAVASTATIN [Concomitant]
     Dates: start: 20090813
  7. CYMBALTA [Concomitant]
     Dates: start: 20080926
  8. PRILOSEC [Concomitant]
     Dates: start: 20071015
  9. METHOTREXATE [Concomitant]
     Indication: RHEUMATOID ARTHRITIS
     Dosage: 20MG WEEKLY
     Route: 058
     Dates: start: 20070206
  10. FOLIC ACID [Concomitant]
     Indication: RHEUMATOID ARTHRITIS
     Dosage: 3MG PER DAY
     Dates: start: 20071130
  11. ETODOLAC [Concomitant]
     Dates: start: 20080623
  12. HYDROCHLOROTHIAZIDE [Concomitant]
     Dates: start: 20080926
  13. PLAQUENIL [Concomitant]
     Dates: start: 20071231
  14. BYETTA [Suspect]
     Indication: DIABETES MELLITUS
     Dosage: 10UG TWICE PER DAY
     Route: 058
     Dates: start: 20100601, end: 20100916
  15. GLUCOPHAGE [Concomitant]
     Dates: start: 20070504
  16. COZAAR [Concomitant]
     Dates: start: 20100727
  17. CLARITIN [Concomitant]
     Dates: start: 20060303
  18. FLUOXETINE [Concomitant]
     Dates: start: 20060630

REACTIONS (7)
  - PARAESTHESIA [None]
  - APHASIA [None]
  - HYPOAESTHESIA [None]
  - MENTAL STATUS CHANGES [None]
  - NAUSEA [None]
  - TRANSIENT ISCHAEMIC ATTACK [None]
  - HEADACHE [None]
